FAERS Safety Report 6501685-6 (Version None)
Quarter: 2009Q4

REPORT INFORMATION
  Report Type: 
  Country: None (occurrence: None)
  Receive Date: 20091214
  Receipt Date: 20091205
  Transmission Date: 20100525
  Serious: Yes (Other)
  Sender: FDA-Public Use
  Company Number: SPV1-2009-02461

PATIENT
  Age: 9 Year
  Sex: Male
  Weight: 27.7 kg

DRUGS (3)
  1. INTUNIV [Suspect]
     Indication: TIC
     Dosage: 1 MG, 1X/DAY:QD, ORAL
     Route: 048
     Dates: start: 20091201, end: 20091203
  2. ZOLOFT [Suspect]
     Indication: ANXIETY
     Dosage: 25 MG, 1X/DAY:QD, ORAL
     Route: 048
     Dates: start: 20090501
  3. DAYTRANA [Concomitant]

REACTIONS (12)
  - CONVULSION [None]
  - DIZZINESS [None]
  - EYE DISORDER [None]
  - EYE ROLLING [None]
  - HYPERHIDROSIS [None]
  - OFF LABEL USE [None]
  - PROTRUSION TONGUE [None]
  - RESPIRATORY RATE INCREASED [None]
  - SEDATION [None]
  - STARING [None]
  - UNRESPONSIVE TO STIMULI [None]
  - VERTIGO [None]
